FAERS Safety Report 19809063 (Version 1)
Quarter: 2021Q3

REPORT INFORMATION
  Report Type: Spontaneous
  Country: US (occurrence: US)
  Receive Date: 20210909
  Receipt Date: 20210909
  Transmission Date: 20211014
  Serious: Yes (Disabling)
  Sender: FDA-Public Use
  Company Number: None

PATIENT
  Age: 46 Year
  Sex: Female
  Weight: 74.25 kg

DRUGS (10)
  1. FAMOTIDINE. [Concomitant]
     Active Substance: FAMOTIDINE
  2. CPAP [Concomitant]
     Active Substance: DEVICE
  3. CORTISONE [Suspect]
     Active Substance: CORTISONE
     Indication: JOINT INJURY
     Route: 030
     Dates: start: 20201231, end: 20201231
  4. PQQ [Concomitant]
  5. MACULAR SUPPLEMENT (LUTEIN + ZEAXANTHIN) [Concomitant]
  6. SYNTHROID [Concomitant]
     Active Substance: LEVOTHYROXINE SODIUM
  7. FISH OIL [Concomitant]
     Active Substance: FISH OIL
  8. VITAMIN D3 [Concomitant]
     Active Substance: CHOLECALCIFEROL
  9. CORTISONE [Suspect]
     Active Substance: CORTISONE
     Indication: SKIN IRRITATION
     Route: 030
     Dates: start: 20201231, end: 20201231
  10. COENZYME Q10 [Concomitant]
     Active Substance: DIETARY SUPPLEMENT\UBIDECARENONE

REACTIONS (19)
  - Paraesthesia [None]
  - Injection site pain [None]
  - Heart rate increased [None]
  - Polymenorrhoea [None]
  - Muscle tightness [None]
  - Sinus disorder [None]
  - Heavy menstrual bleeding [None]
  - Drug ineffective [None]
  - Menstruation irregular [None]
  - Injection site reaction [None]
  - Spider vein [None]
  - Vertigo [None]
  - Hypertension [None]
  - White blood cell count increased [None]
  - Flushing [None]
  - Anxiety [None]
  - Agitation [None]
  - Symptom recurrence [None]
  - Neutrophil count increased [None]

NARRATIVE: CASE EVENT DATE: 20210108
